FAERS Safety Report 7631445-4 (Version None)
Quarter: 2011Q3

REPORT INFORMATION
  Report Type: 
  Country: None (occurrence: None)
  Receive Date: 20110725
  Receipt Date: 20110712
  Transmission Date: 20111222
  Serious: Yes (Hospitalization)
  Sender: FDA-Public Use
  Company Number: FR-ELI_LILLY_AND_COMPANY-FR201107002925

PATIENT
  Sex: Male

DRUGS (6)
  1. FLUPHENAZINE HCL [Concomitant]
     Indication: PSYCHOTIC DISORDER
     Dosage: UNK
     Dates: end: 20110425
  2. TRANSIPEG [Concomitant]
     Indication: CONSTIPATION
     Dosage: UNK
     Route: 048
  3. ZYPREXA [Suspect]
     Dosage: 10 MG, BID
     Route: 048
  4. LEXOMIL [Concomitant]
     Dosage: 1 DF, QD
     Route: 048
  5. LOXAPINE HCL [Concomitant]
     Indication: PSYCHOTIC DISORDER
     Dosage: UNK, QD
     Dates: start: 20110425
  6. GARDENAL [Concomitant]
     Dosage: 150 MG, QD
     Route: 048

REACTIONS (4)
  - SOMNOLENCE [None]
  - FEMUR FRACTURE [None]
  - DRUG INTERACTION [None]
  - FALL [None]
